FAERS Safety Report 11442585 (Version 2)
Quarter: 2015Q3

REPORT INFORMATION
  Report Type: Spontaneous
  Country: US (occurrence: US)
  Receive Date: 20150901
  Receipt Date: 20150918
  Transmission Date: 20151125
  Serious: Yes (Other)
  Sender: FDA-Public Use
  Company Number: US-BAYER-2015-412098

PATIENT
  Sex: Female

DRUGS (1)
  1. MIRENA [Suspect]
     Active Substance: LEVONORGESTREL
     Dosage: 20 MCG/24HR, CONT
     Route: 015

REACTIONS (44)
  - Kidney infection [Unknown]
  - Abdominal distension [Unknown]
  - Constipation [Unknown]
  - Acne [Unknown]
  - Fatigue [Unknown]
  - Irritable bowel syndrome [Unknown]
  - Peripheral swelling [Recovering/Resolving]
  - Hypoaesthesia [Unknown]
  - Migraine [Recovered/Resolved]
  - Vomiting [Unknown]
  - Loss of libido [Unknown]
  - Anger [Unknown]
  - Musculoskeletal pain [Unknown]
  - Thinking abnormal [Unknown]
  - Bacterial vaginosis [Unknown]
  - Diarrhoea [Unknown]
  - Weight loss poor [Recovered/Resolved]
  - Bone pain [Unknown]
  - Embedded device [Unknown]
  - Intervertebral disc degeneration [Unknown]
  - Paraesthesia [Unknown]
  - Dyspareunia [Unknown]
  - Coital bleeding [Unknown]
  - Memory impairment [Unknown]
  - Ligament rupture [Unknown]
  - Back pain [Unknown]
  - Nausea [Unknown]
  - Anorgasmia [Unknown]
  - Pain [Unknown]
  - Anxiety [Unknown]
  - Mood swings [Unknown]
  - Alopecia [Unknown]
  - Night sweats [Unknown]
  - Joint range of motion decreased [Unknown]
  - Ovulation pain [Unknown]
  - Insomnia [Unknown]
  - Hot flush [Unknown]
  - Gastrointestinal pain [Unknown]
  - Gastrooesophageal reflux disease [Unknown]
  - Neuralgia [Unknown]
  - Tinnitus [Unknown]
  - Hepatic steatosis [Unknown]
  - Hirsutism [Unknown]
  - Arthritis [Recovering/Resolving]

NARRATIVE: CASE EVENT DATE: 2010
